FAERS Safety Report 7315632-0 (Version None)
Quarter: 2011Q1

REPORT INFORMATION
  Report Type: 
  Country: None (occurrence: None)
  Receive Date: 20110225
  Receipt Date: 20110210
  Transmission Date: 20110831
  Serious: Yes (Hospitalization)
  Sender: FDA-Public Use
  Company Number: PHHY2011TR10719

PATIENT
  Age: 63 Year
  Sex: Male

DRUGS (3)
  1. LEFLUNOMIDE [Interacting]
     Indication: RHEUMATOID ARTHRITIS
     Dosage: 20 MG, QD
  2. WARFARIN SODIUM [Suspect]
     Indication: EMBOLISM ARTERIAL
  3. WARFARIN SODIUM [Interacting]
     Indication: ATRIAL FIBRILLATION

REACTIONS (20)
  - MUSCULOSKELETAL STIFFNESS [None]
  - PYREXIA [None]
  - GRANULOMA [None]
  - GENERAL PHYSICAL CONDITION ABNORMAL [None]
  - SYSTEMIC CANDIDA [None]
  - HAEMORRHAGE [None]
  - DRY SKIN [None]
  - CONFUSIONAL STATE [None]
  - URINARY INCONTINENCE [None]
  - CSF PRESSURE INCREASED [None]
  - GASTROINTESTINAL HAEMORRHAGE [None]
  - ABDOMINAL PAIN [None]
  - MENINGITIS [None]
  - ISCHAEMIA [None]
  - CENTRAL NERVOUS SYSTEM LESION [None]
  - FINGER DEFORMITY [None]
  - ABDOMINAL ABSCESS [None]
  - DISORIENTATION [None]
  - DRUG INTERACTION [None]
  - ABDOMINAL DISTENSION [None]
